FAERS Safety Report 6349590-2 (Version None)
Quarter: 2009Q3

REPORT INFORMATION
  Report Type: 
  Country: None (occurrence: None)
  Receive Date: 20090911
  Receipt Date: 20090831
  Transmission Date: 20100115
  Serious: Yes (Hospitalization)
  Sender: FDA-Public Use
  Company Number: PHHY2009JP33444

PATIENT
  Age: 52 Year
  Sex: Female

DRUGS (4)
  1. DIOVAN [Suspect]
     Dosage: 80 MG, QD
     Route: 048
     Dates: start: 20090730
  2. FERROMIA [Concomitant]
  3. MUCOSTA [Concomitant]
     Dosage: UNK
  4. MERISLON [Concomitant]
     Dosage: 9 DF, UNK
     Route: 048

REACTIONS (2)
  - DIZZINESS [None]
  - SURGERY [None]
